FAERS Safety Report 7502005 (Version 6)
Quarter: 2017Q4

REPORT INFORMATION
  Report Type: Spontaneous
  Country: JP (occurrence: JP)
  Receive Date: 20100727
  Receipt Date: 20171122
  Transmission Date: 20180321
  Serious: Yes (Death)
  Sender: FDA-Public Use
  Company Number: PHHY2010JP46161

PATIENT
  Age: 64 Year
  Sex: Male
  Weight: 57 kg

DRUGS (1)
  1. ZOMETA [Suspect]
     Active Substance: ZOLEDRONIC ACID
     Indication: METASTASES TO BONE
     Dosage: 4 MG, UNK (19 TIMES)
     Route: 041
     Dates: start: 20080709, end: 20100125

REACTIONS (9)
  - Dysphagia [Fatal]
  - Purulent discharge [Fatal]
  - Osteonecrosis of jaw [Fatal]
  - Exposed bone in jaw [Fatal]
  - Swelling [Fatal]
  - Osteomyelitis [Fatal]
  - Oral pain [Fatal]
  - Abscess jaw [Fatal]
  - Fistula [Fatal]

NARRATIVE: CASE EVENT DATE: 20100125
